FAERS Safety Report 4492400-9 (Version None)
Quarter: 2004Q4

REPORT INFORMATION
  Report Type: 
  Country: None (occurrence: None)
  Receive Date: 20041101
  Receipt Date: 20041101
  Transmission Date: 20050328
  Serious: Yes (Life-Threatening)
  Sender: FDA-Public Use
  Company Number: None

PATIENT
  Age: 50 Year
  Sex: Female
  Weight: 65.7716 kg

DRUGS (1)
  1. BEXTRA [Suspect]
     Indication: BACK PAIN
     Dosage: ONE TAB PO
     Route: 048
     Dates: start: 20041015

REACTIONS (4)
  - ABDOMINAL PAIN [None]
  - BLOOD PRESSURE INCREASED [None]
  - SINUS TACHYCARDIA [None]
  - THYROTOXIC CRISIS [None]
